FAERS Safety Report 9789107 (Version 4)
Quarter: 2014Q1

REPORT INFORMATION
  Report Type: Spontaneous
  Country: JP (occurrence: JP)
  Receive Date: 20131230
  Receipt Date: 20140306
  Transmission Date: 20141002
  Serious: Yes (Hospitalization)
  Sender: FDA-Public Use
  Company Number: JP-ABBVIE-13P-087-1182761-00

PATIENT
  Age: 66 Year
  Sex: Male
  Weight: 102 kg

DRUGS (7)
  1. HUMIRA [Suspect]
     Indication: RHEUMATOID ARTHRITIS
     Route: 058
     Dates: start: 20131115, end: 20131129
  2. METHOTREXATE [Concomitant]
     Indication: RHEUMATOID ARTHRITIS
     Dosage: 16 MG/WEEK
  3. METHOTREXATE [Concomitant]
     Dates: start: 20120719, end: 20120815
  4. METHOTREXATE [Concomitant]
     Dates: start: 20120816, end: 20120919
  5. METHOTREXATE [Concomitant]
     Dosage: 6MG, 6MG, 4MG
     Dates: start: 20120920
  6. FOLIC ACID [Concomitant]
     Indication: RHEUMATOID ARTHRITIS
     Route: 048
     Dates: start: 20120719, end: 20120815
  7. FOLIC ACID [Concomitant]
     Dates: start: 20120816, end: 20121219

REACTIONS (5)
  - Drug eruption [Recovering/Resolving]
  - Oedema peripheral [Recovering/Resolving]
  - Erythema of eyelid [Recovering/Resolving]
  - Erythema [Unknown]
  - Pigmentation disorder [Unknown]
